FAERS Safety Report 5427143-8 (Version None)
Quarter: 2007Q3

REPORT INFORMATION
  Report Type: 
  Country: None (occurrence: None)
  Receive Date: 20070828
  Receipt Date: 20070816
  Transmission Date: 20080115
  Serious: Yes (Other)
  Sender: FDA-Public Use
  Company Number: PHBS2007SE13643

PATIENT
  Age: 44 Year
  Sex: Female

DRUGS (1)
  1. RITALIN [Suspect]
     Dosage: 400 MG, ONCE/SINGLE

REACTIONS (4)
  - BLOOD PRESSURE INCREASED [None]
  - DRUG TOXICITY [None]
  - HEART RATE INCREASED [None]
  - MYDRIASIS [None]
